FAERS Safety Report 26067695 (Version 3)
Quarter: 2025Q4

REPORT INFORMATION
  Report Type: Spontaneous
  Country: EU (occurrence: EU)
  Receive Date: 20251120
  Receipt Date: 20251215
  Transmission Date: 20260117
  Serious: Yes (Hospitalization, Other)
  Sender: BIOVITRUM
  Company Number: EU-BIOVITRUM-2025-FR-015972

PATIENT
  Age: 5 Year
  Sex: Female
  Weight: 29 kg

DRUGS (6)
  1. KINERET [Suspect]
     Active Substance: ANAKINRA
     Indication: Acute lymphocytic leukaemia
     Dosage: EVERY 6 HOURS
     Route: 042
     Dates: start: 20251112, end: 20251121
  2. TOCILIZUMAB [Suspect]
     Active Substance: TOCILIZUMAB
     Indication: Acute lymphocytic leukaemia
     Dosage: SECOND DOSE (12 HOURS LATER)
     Dates: start: 20251109
  3. TOCILIZUMAB [Suspect]
     Active Substance: TOCILIZUMAB
     Dosage: FIRST DOSE
     Dates: start: 20251109
  4. METHYLPREDNISOLONE [Suspect]
     Active Substance: METHYLPREDNISOLONE
     Indication: Acute lymphocytic leukaemia
     Dates: start: 20251109
  5. METHYLPREDNISOLONE [Suspect]
     Active Substance: METHYLPREDNISOLONE
     Dates: start: 20251111
  6. DEXAMETHASONE [Suspect]
     Active Substance: DEXAMETHASONE
     Indication: Acute lymphocytic leukaemia
     Dosage: EVERY 12 HOURS
     Dates: start: 20251112

REACTIONS (7)
  - Haemophagocytic lymphohistiocytosis [Recovered/Resolved]
  - Off label use [Recovered/Resolved]
  - Haemodynamic instability [Unknown]
  - Hypernatraemia [Unknown]
  - Oedema [Unknown]
  - Abdominal pain [Unknown]
  - Disseminated intravascular coagulation [Unknown]

NARRATIVE: CASE EVENT DATE: 20251112
